FAERS Safety Report 4669539-8 (Version None)
Quarter: 2005Q2

REPORT INFORMATION
  Report Type: 
  Country: None (occurrence: None)
  Receive Date: 20050520
  Receipt Date: 20050509
  Transmission Date: 20051028
  Serious: Yes (Hospitalization)
  Sender: FDA-Public Use
  Company Number: 2005074999

PATIENT
  Sex: Female

DRUGS (5)
  1. MECLIZINE [Suspect]
  2. PERMETHRIN [Suspect]
     Indication: LICE INFESTATION
     Dates: start: 20030101
  3. A-200 PYRINATE (PIPERONYL BUTOXIDE, PYRETHRUM EXTRACT) [Suspect]
     Indication: LICE INFESTATION
     Dates: start: 20030101
  4. ONDANSETRON HCL [Suspect]
     Dates: start: 20030402
  5. PRENATAL VITAMNS (ASCORBIC ACID, BIOTIN, MINERALS NOS, NICOTINIC ACID, [Concomitant]

REACTIONS (3)
  - DRUG EXPOSURE DURING PREGNANCY [None]
  - PREMATURE LABOUR [None]
  - PREMATURE RUPTURE OF MEMBRANES [None]
